FAERS Safety Report 19979192 (Version 1)
Quarter: 2021Q4

REPORT INFORMATION
  Report Type: Spontaneous
  Country: FR (occurrence: FR)
  Receive Date: 20211021
  Receipt Date: 20211021
  Transmission Date: 20220303
  Serious: Yes (Life-Threatening)
  Sender: FDA-Public Use
  Company Number: None

PATIENT
  Age: 89 Year
  Sex: Male
  Weight: 53 kg

DRUGS (6)
  1. FUROSEMIDE [Suspect]
     Active Substance: FUROSEMIDE
     Indication: Cardiac failure
     Dosage: 1 DF, QD (ANN?ES)
     Route: 048
     Dates: end: 20210809
  2. AMIODARONE [Suspect]
     Active Substance: AMIODARONE
     Indication: Atrial fibrillation
     Dosage: 1 DF, QD (ANN?ES)
     Route: 048
     Dates: end: 20210809
  3. BISOPROLOL [Suspect]
     Active Substance: BISOPROLOL
     Indication: Cardiac failure
     Dosage: 1 DF, QD
     Route: 048
     Dates: end: 20210809
  4. PERINDOPRIL [Suspect]
     Active Substance: PERINDOPRIL
     Indication: Cardiac failure
     Dosage: 1 DF, QD
     Route: 048
     Dates: end: 20210809
  5. ELIQUIS [Suspect]
     Active Substance: APIXABAN
     Indication: Atrial fibrillation
     Dosage: 10 MG, QD
     Route: 048
     Dates: end: 20210809
  6. KARDEGIC [Suspect]
     Active Substance: ASPIRIN DL-LYSINE
     Indication: Coronary artery disease
     Dosage: 1 DF, QD
     Route: 048
     Dates: end: 20210809

REACTIONS (4)
  - Shock haemorrhagic [Recovered/Resolved]
  - Melaena [Recovered/Resolved]
  - Acute kidney injury [Recovered/Resolved]
  - Rectal haemorrhage [Recovered/Resolved]

NARRATIVE: CASE EVENT DATE: 20210807
